FAERS Safety Report 13568097 (Version 2)
Quarter: 2017Q2

REPORT INFORMATION
  Report Type: Report from Study
  Country: DE (occurrence: DE)
  Receive Date: 20170522
  Receipt Date: 20170524
  Transmission Date: 20170830
  Serious: Yes (Death, Life-Threatening, Hospitalization, Disabling, Other)
  Sender: FDA-Public Use
  Company Number: DE-PFIZER INC-2017216802

PATIENT
  Age: 54 Year
  Sex: Male
  Weight: 93 kg

DRUGS (12)
  1. FENTANYL. [Concomitant]
     Active Substance: FENTANYL
     Dosage: 0.5 AMP
     Route: 042
     Dates: start: 20170510, end: 20170510
  2. ABCIXIMAB [Concomitant]
     Active Substance: ABCIXIMAB
     Dosage: 1 AMP
     Route: 042
     Dates: start: 20170510, end: 20170510
  3. ARGATRA [Suspect]
     Active Substance: ARGATROBAN
     Dosage: 15 MCG/KG/MIN
     Route: 042
     Dates: start: 20170510, end: 20170510
  4. SUPRARENIN [Concomitant]
     Active Substance: EPINEPHRINE
     Dosage: 1:10 30 ML, UNK
     Route: 042
     Dates: start: 20170510, end: 20170510
  5. HEPARIN [Concomitant]
     Active Substance: HEPARIN SODIUM
     Dosage: 5000 IE
     Route: 042
     Dates: start: 20170510, end: 20170510
  6. ARGATRA [Suspect]
     Active Substance: ARGATROBAN
     Dosage: 20 MCG/KG/MIN
     Route: 042
     Dates: start: 20170510, end: 20170510
  7. ROCURONIUM [Concomitant]
     Active Substance: ROCURONIUM BROMIDE
     Dosage: 100 MG, UNK
     Route: 042
     Dates: start: 20170510, end: 20170510
  8. ARGATRA [Suspect]
     Active Substance: ARGATROBAN
     Indication: ANTICOAGULANT THERAPY
     Dosage: BOLUS, 300 MCG/KG/MIN
     Route: 042
     Dates: start: 20170510, end: 20170510
  9. KETAMIN [Concomitant]
     Active Substance: KETAMINE
     Dosage: 100 MG, UNK
     Route: 042
     Dates: start: 20170510, end: 20170510
  10. SUPRARENIN [Concomitant]
     Active Substance: EPINEPHRINE
     Dosage: 1:100 10 ML, UNK
     Route: 042
     Dates: start: 20170510, end: 20170510
  11. MIDAZOLAM [Concomitant]
     Active Substance: MIDAZOLAM HYDROCHLORIDE
     Dosage: 15 MG, UNK
     Route: 042
     Dates: start: 20170510, end: 20170510
  12. ABCIXIMAB [Concomitant]
     Active Substance: ABCIXIMAB
     Dosage: 2 AMPS
     Route: 042
     Dates: start: 20170510, end: 20170510

REACTIONS (2)
  - Acute myocardial infarction [Fatal]
  - Vascular stent thrombosis [Fatal]

NARRATIVE: CASE EVENT DATE: 20170510
